FAERS Safety Report 11752010 (Version 3)
Quarter: 2016Q3

REPORT INFORMATION
  Report Type: Spontaneous
  Country: US (occurrence: US)
  Receive Date: 20151118
  Receipt Date: 20160901
  Transmission Date: 20161109
  Serious: Yes (Hospitalization, Other)
  Sender: FDA-Public Use
  Company Number: US-GLAXOSMITHKLINE-US2015GSK164603

PATIENT
  Age: 55 Year
  Sex: Female

DRUGS (2)
  1. BENLYSTA [Suspect]
     Active Substance: BELIMUMAB
     Indication: SYSTEMIC LUPUS ERYTHEMATOSUS
     Dosage: UNK, U
     Dates: end: 20150807
  2. BENLYSTA [Suspect]
     Active Substance: BELIMUMAB
     Dosage: UNK

REACTIONS (7)
  - Neoplasm malignant [Unknown]
  - Ovarian cancer [Unknown]
  - Cerebrovascular accident [Unknown]
  - Fallopian tube cancer [Unknown]
  - Surgery [Unknown]
  - Hospitalisation [Unknown]
  - Chemotherapy [Unknown]

NARRATIVE: CASE EVENT DATE: 2015
